FAERS Safety Report 6426673-X (Version None)
Quarter: 2009Q4

REPORT INFORMATION
  Report Type: 
  Country: None (occurrence: None)
  Receive Date: 20091104
  Receipt Date: 20091021
  Transmission Date: 20100525
  Serious: Yes (Hospitalization, Other)
  Sender: FDA-Public Use
  Company Number: CN-BAYER-200936837GPV

PATIENT
  Age: 60 Year
  Sex: Male

DRUGS (5)
  1. MAGNEVIST [Suspect]
     Indication: NUCLEAR MAGNETIC RESONANCE IMAGING
     Dosage: TOTAL DAILY DOSE: 30 ML
     Route: 042
     Dates: start: 20091016, end: 20091016
  2. SHUXUETONG (TRADITIONAL CHINESE MEDICINE) [Concomitant]
     Indication: THROMBOLYSIS
     Dosage: TOTAL DAILY DOSE: 6 ML
     Route: 041
  3. EDARAVONE [Concomitant]
     Dosage: TOTAL DAILY DOSE: 30 MG
     Route: 041
  4. ASPIRIN [Concomitant]
     Dosage: TOTAL DAILY DOSE: 100 MG
     Route: 048
  5. OXYGEN [Concomitant]
     Route: 055

REACTIONS (7)
  - BLOOD PRESSURE DECREASED [None]
  - EYELID OEDEMA [None]
  - FAECAL INCONTINENCE [None]
  - HYPERHIDROSIS [None]
  - SHOCK [None]
  - URINARY INCONTINENCE [None]
  - URTICARIA [None]
